FAERS Safety Report 6299004-6 (Version None)
Quarter: 2009Q3

REPORT INFORMATION
  Report Type: 
  Country: None (occurrence: None)
  Receive Date: 20090806
  Receipt Date: 20090722
  Transmission Date: 20100115
  Serious: No
  Sender: FDA-Public Use
  Company Number: PHHY2009MX26667

PATIENT
  Sex: Female

DRUGS (3)
  1. DIOVAN HCT [Suspect]
     Indication: HYPERTENSION
     Dosage: 1 DF (80/ 12.5 MG) PER DAY
     Dates: start: 20040501
  2. FOSAMAX [Concomitant]
     Indication: OSTEOPOROSIS
     Dosage: 1 TABLET EACH 8 DAYS
  3. OMEPRAZOLE [Concomitant]
     Indication: GASTRIC ULCER
     Dosage: 1 DF, UNK

REACTIONS (1)
  - BONE PAIN [None]
